FAERS Safety Report 15933507 (Version 2)
Quarter: 2019Q1

REPORT INFORMATION
  Report Type: Spontaneous
  Country: US (occurrence: US)
  Receive Date: 20190207
  Receipt Date: 20190329
  Transmission Date: 20190417
  Serious: No
  Sender: FDA-Public Use
  Company Number: US-ASTRAZENECA-2019SE05142

PATIENT
  Age: 823 Month
  Sex: Female
  Weight: 77.1 kg

DRUGS (5)
  1. MORPHINE [Concomitant]
     Active Substance: MORPHINE
     Indication: LIMB DISCOMFORT
     Dosage: 15.0MG AS REQUIRED
     Route: 048
     Dates: start: 2017
  2. SYMBICORT [Suspect]
     Active Substance: BUDESONIDE\FORMOTEROL FUMARATE DIHYDRATE
     Indication: ASTHMA
     Dosage: 160/4.5 MCG 2 PUFFS TWICE A DAY
     Route: 055
  3. MORPHINE [Concomitant]
     Active Substance: MORPHINE
     Indication: MUSCULOSKELETAL DISCOMFORT
     Dosage: 15.0MG AS REQUIRED
     Route: 048
     Dates: start: 2017
  4. PAXIL [Concomitant]
     Active Substance: PAROXETINE HYDROCHLORIDE
     Indication: STRESS
     Route: 048
     Dates: start: 2018
  5. PROVENTIL [Concomitant]
     Active Substance: ALBUTEROL
     Indication: ASTHMA
     Dosage: AS REQUIRED
     Route: 055

REACTIONS (7)
  - Limb discomfort [Not Recovered/Not Resolved]
  - Back disorder [Not Recovered/Not Resolved]
  - Tremor [Not Recovered/Not Resolved]
  - Device malfunction [Unknown]
  - Dyspnoea [Not Recovered/Not Resolved]
  - Product dose omission [Not Recovered/Not Resolved]
  - Device issue [Not Recovered/Not Resolved]

NARRATIVE: CASE EVENT DATE: 201901
